FAERS Safety Report 19211723 (Version 2)
Quarter: 2021Q3

REPORT INFORMATION
  Report Type: Spontaneous
  Country: JP (occurrence: JP)
  Receive Date: 20210504
  Receipt Date: 20210810
  Transmission Date: 20211014
  Serious: Yes (Death, Life-Threatening, Hospitalization, Other)
  Sender: FDA-Public Use
  Company Number: JP-PFIZER INC-2021445783

PATIENT
  Age: 71 Year
  Sex: Female
  Weight: 67 kg

DRUGS (2)
  1. XELJANZ [Suspect]
     Active Substance: TOFACITINIB CITRATE
     Indication: RHEUMATOID ARTHRITIS
     Dosage: 5 MG, 2X/DAY
     Route: 048
     Dates: start: 20150527, end: 20201107
  2. XELJANZ [Suspect]
     Active Substance: TOFACITINIB CITRATE
     Dosage: 5 MG, 1X/DAY
     Route: 048
     Dates: start: 20201108, end: 20210203

REACTIONS (6)
  - Metastases to peritoneum [Unknown]
  - Neoplasm progression [Unknown]
  - Pyrexia [Unknown]
  - Colon cancer [Fatal]
  - Metastases to lung [Unknown]
  - Metastases to liver [Unknown]

NARRATIVE: CASE EVENT DATE: 20191115
